FAERS Safety Report 6527580-4 (Version None)
Quarter: 2010Q1

REPORT INFORMATION
  Report Type: 
  Country: None (occurrence: None)
  Receive Date: 20100105
  Receipt Date: 20091223
  Transmission Date: 20100710
  Serious: Yes (Hospitalization)
  Sender: FDA-Public Use
  Company Number: PHHY2009GR57806

PATIENT
  Sex: Male

DRUGS (4)
  1. AFINITOR [Suspect]
     Dosage: UNK
     Dates: start: 20091201
  2. AVASTIN [Concomitant]
  3. CISPLATIN [Concomitant]
  4. HYCAMTIN [Concomitant]

REACTIONS (2)
  - BLOOD CREATININE DECREASED [None]
  - WHITE BLOOD CELL COUNT DECREASED [None]
